FAERS Safety Report 6603581-2 (Version None)
Quarter: 2010Q1

REPORT INFORMATION
  Report Type: 
  Country: None (occurrence: None)
  Receive Date: 20100226
  Receipt Date: 20091026
  Transmission Date: 20100710
  Serious: No
  Sender: FDA-Public Use
  Company Number: A0813387A

PATIENT
  Age: 68 Year
  Sex: Female

DRUGS (3)
  1. VALTREX [Suspect]
     Indication: ANTIVIRAL PROPHYLAXIS
     Dosage: 1000MG TWICE PER DAY
     Route: 048
     Dates: start: 20090701
  2. STEROID [Concomitant]
  3. REFRESH [Concomitant]

REACTIONS (1)
  - INTRAOCULAR PRESSURE INCREASED [None]
